FAERS Safety Report 23153553 (Version 1)
Quarter: 2023Q4

REPORT INFORMATION
  Report Type: Spontaneous
  Country: DE (occurrence: DE)
  Receive Date: 20231107
  Receipt Date: 20231107
  Transmission Date: 20240110
  Serious: Yes (Other)
  Sender: FDA-Public Use
  Company Number: DE-ASTELLAS-2023US021968

PATIENT
  Age: 64 Year
  Sex: Male

DRUGS (10)
  1. ENFORTUMAB VEDOTIN [Suspect]
     Active Substance: ENFORTUMAB VEDOTIN
     Indication: Transitional cell carcinoma
     Dosage: 1.25 MG/KG BODY WEIGHT, CYCLIC (2 CYCLES)
     Route: 065
     Dates: start: 202305, end: 202306
  2. ENFORTUMAB VEDOTIN [Suspect]
     Active Substance: ENFORTUMAB VEDOTIN
     Dosage: 0.75 MG/KG BODY WEIGHT , CYCLIC (4 MORE CYCLES) (DOSE REDUCED)
     Route: 065
     Dates: start: 202308, end: 20231031
  3. GEMCITABINE [Concomitant]
     Active Substance: GEMCITABINE
     Indication: Product used for unknown indication
     Dosage: UNK UNK, CYCLIC (3 CYCLES)
     Route: 065
  4. PEMBROLIZUMAB [Concomitant]
     Active Substance: PEMBROLIZUMAB
     Indication: Product used for unknown indication
     Dosage: UNK UNK, CYCLIC
     Route: 065
     Dates: start: 20230307
  5. PEMBROLIZUMAB [Concomitant]
     Active Substance: PEMBROLIZUMAB
     Dosage: UNK UNK, CYCLIC
     Route: 065
     Dates: start: 20230329
  6. CARBOPLATIN [Concomitant]
     Active Substance: CARBOPLATIN
     Indication: Product used for unknown indication
     Dosage: UNK UNK, CYCLIC (3 CYCLES)
     Route: 065
  7. BLANEL [Concomitant]
     Indication: Product used for unknown indication
     Dosage: UNK UNK, ONCE DAILY (1 0 0 0)
     Route: 048
  8. BUPRENORPHINE [Concomitant]
     Active Substance: BUPRENORPHINE
     Indication: Product used for unknown indication
     Dosage: UNK UNK, ONCE WEEKLY (CHANGE EVERY 7 DAYS)
     Route: 062
  9. SPIRONOLACTONE [Concomitant]
     Active Substance: SPIRONOLACTONE
     Indication: Product used for unknown indication
     Dosage: 25 MG, ONCE DAILY (1 0 0 0)
     Route: 048
  10. CALCIUM\CHOLECALCIFEROL [Concomitant]
     Active Substance: CALCIUM\CHOLECALCIFEROL
     Indication: Product used for unknown indication
     Dosage: D3 500 MG/400 IU, ONCE DAILY (1 0 0 0)
     Route: 048

REACTIONS (3)
  - Pseudocirrhosis [Unknown]
  - Suspected drug-induced liver injury [Unknown]
  - Ascites [Unknown]
